FAERS Safety Report 11399454 (Version 2)
Quarter: 2015Q4

REPORT INFORMATION
  Report Type: Spontaneous
  Country: CH (occurrence: CH)
  Receive Date: 20150820
  Receipt Date: 20151117
  Transmission Date: 20160304
  Serious: Yes (Other)
  Sender: FDA-Public Use
  Company Number: CH-PFIZER INC-2015271587

PATIENT
  Age: 43 Year
  Sex: Female
  Weight: 68 kg

DRUGS (4)
  1. SAYANA [Suspect]
     Active Substance: MEDROXYPROGESTERONE
     Dosage: 0.65 ML, 1X
     Route: 058
     Dates: start: 20130521
  2. SAYANA [Suspect]
     Active Substance: MEDROXYPROGESTERONE
     Indication: CONTRACEPTION
     Dosage: 0.65ML 1X
     Route: 058
     Dates: start: 20130225
  3. SAYANA [Suspect]
     Active Substance: MEDROXYPROGESTERONE
     Dosage: 0.65 ML, 1X
     Route: 058
     Dates: start: 20140515
  4. SAYANA [Suspect]
     Active Substance: MEDROXYPROGESTERONE
     Dosage: 0.65 ML, 1X
     Route: 058
     Dates: start: 20141111

REACTIONS (2)
  - Injection site reaction [Not Recovered/Not Resolved]
  - Injection site necrosis [Unknown]

NARRATIVE: CASE EVENT DATE: 20150507
